FAERS Safety Report 15202330 (Version 1)
Quarter: 2018Q3

REPORT INFORMATION
  Report Type: Spontaneous
  Country: US (occurrence: US)
  Receive Date: 20180627
  Receipt Date: 20180627
  Transmission Date: 20181010
  Serious: Yes (Disabling)
  Sender: FDA-Public Use
  Company Number: None

PATIENT
  Age: 69 Year
  Sex: Male
  Weight: 84.78 kg

DRUGS (5)
  1. VOLTAREN 1% GEL [Concomitant]
     Dates: start: 20180503
  2. MULTIVITAMIN [Concomitant]
     Active Substance: VITAMINS
     Dates: start: 20180503
  3. CICLOPIROX 0.77% [Concomitant]
     Dates: start: 20180503
  4. METFORMIN 500MG 1 PO BID [Concomitant]
     Dates: start: 20180503
  5. ATORVASTATIN [Suspect]
     Active Substance: ATORVASTATIN
     Indication: BLOOD CHOLESTEROL
     Route: 048
     Dates: start: 20180503, end: 20180618

REACTIONS (4)
  - Memory impairment [None]
  - Disturbance in attention [None]
  - Cognitive disorder [None]
  - Feeling abnormal [None]

NARRATIVE: CASE EVENT DATE: 20180618
